FAERS Safety Report 9558364 (Version 3)
Quarter: 2013Q4

REPORT INFORMATION
  Report Type: Spontaneous
  Country: JP (occurrence: JP)
  Receive Date: 20130926
  Receipt Date: 20131017
  Transmission Date: 20140711
  Serious: Yes (Hospitalization)
  Sender: FDA-Public Use
  Company Number: JP-TAKEDA-TPA2013A07264

PATIENT
  Sex: 0

DRUGS (7)
  1. FEBURIC [Suspect]
     Indication: HYPERURICAEMIA
     Dosage: 10 MG, QD
     Route: 048
     Dates: start: 20120410, end: 20120613
  2. PERYCIT [Concomitant]
     Indication: DYSLIPIDAEMIA
     Dosage: 750 MG, QD
     Route: 048
     Dates: start: 20070402
  3. DIOVAN [Concomitant]
     Indication: HYPERTENSION
     Dosage: 160 MG, QD
     Route: 048
  4. CRESTOR                            /01588601/ [Concomitant]
     Indication: DYSLIPIDAEMIA
     Dosage: 2.5 MG, QD
     Route: 048
  5. CALBLOCK [Concomitant]
     Indication: HYPERTENSION
     Dosage: 16 MG, QD
     Route: 048
  6. DILAZEP DIHYDROCHLORIDE [Concomitant]
     Indication: IGA NEPHROPATHY
     Dosage: 300 MG, QD
     Route: 048
  7. ACECOL [Concomitant]
     Indication: HYPERTENSION
     Dosage: 4 MG, QD
     Route: 048

REACTIONS (1)
  - Polymyalgia rheumatica [Recovered/Resolved]
